FAERS Safety Report 7301055-7 (Version None)
Quarter: 2011Q1

REPORT INFORMATION
  Report Type: 
  Country: None (occurrence: None)
  Receive Date: 20110218
  Receipt Date: 20110208
  Transmission Date: 20110831
  Serious: Yes (Other)
  Sender: FDA-Public Use
  Company Number: US-MYLANLABS-2011S1002722

PATIENT
  Age: 71 Year
  Sex: Female

DRUGS (5)
  1. TEMAZEPAM [Suspect]
     Indication: INSOMNIA
     Route: 048
     Dates: start: 20101001
  2. ASPIRIN [Concomitant]
     Indication: CARDIAC DISORDER
  3. ATACAND HCT [Concomitant]
     Indication: BLOOD PRESSURE INCREASED
  4. LEVOTHYROXINE SODIUM [Concomitant]
     Indication: HYPOTHYROIDISM
  5. CRESTOR [Concomitant]
     Indication: BLOOD CHOLESTEROL INCREASED

REACTIONS (6)
  - DRUG WITHDRAWAL SYNDROME [None]
  - FATIGUE [None]
  - DECREASED APPETITE [None]
  - ABDOMINAL PAIN [None]
  - NAUSEA [None]
  - DEHYDRATION [None]
